FAERS Safety Report 13393022 (Version 3)
Quarter: 2017Q2

REPORT INFORMATION
  Report Type: Spontaneous
  Country: US (occurrence: US)
  Receive Date: 20170331
  Receipt Date: 20170511
  Transmission Date: 20170830
  Serious: Yes (Hospitalization, Other)
  Sender: FDA-Public Use
  Company Number: US-PFIZER INC-2017132994

PATIENT
  Age: 67 Year
  Sex: Male
  Weight: 89.8 kg

DRUGS (14)
  1. GLIMEPIRIDE. [Concomitant]
     Active Substance: GLIMEPIRIDE
     Indication: TYPE 2 DIABETES MELLITUS
     Dosage: 1 MG, 1X/DAY
  2. HYDROXYZINE [Concomitant]
     Active Substance: HYDROXYZINE HYDROCHLORIDE
     Indication: PRURITUS
     Dosage: UNK
  3. CAVERJECT [Suspect]
     Active Substance: ALPROSTADIL
     Indication: ERECTILE DYSFUNCTION
     Dosage: 10 UG, UNK
  4. LOSARTAN POTASSIUM. [Concomitant]
     Active Substance: LOSARTAN POTASSIUM
     Indication: BLOOD PRESSURE ABNORMAL
     Dosage: 100 MG, 1X/DAY
  5. OXYCODONE [Concomitant]
     Active Substance: OXYCODONE
     Indication: BACK PAIN
     Dosage: 7.5/325 MG, AS NEEDED
  6. CHLORTHALIDONE. [Concomitant]
     Active Substance: CHLORTHALIDONE
     Indication: FLUID RETENTION
     Dosage: 12.5 MG, 1X/DAY (ONE HALF OF A 25MG PILL ONCE A DAY)
  7. LABETALOL [Concomitant]
     Active Substance: LABETALOL\LABETALOL HYDROCHLORIDE
     Indication: HYPERTENSION
     Dosage: 200 MG IN THE MORNING; ONE HALF OF A 200 MG DOSE IN THE AFTERNOON AND 200 MG AT NIGHT.
  8. DILTIAZEM. [Concomitant]
     Active Substance: DILTIAZEM
     Indication: BLOOD PRESSURE ABNORMAL
     Dosage: 240 MG, 1X/DAY
  9. XANAX [Concomitant]
     Active Substance: ALPRAZOLAM
     Indication: ANGER
     Dosage: 1 MG THREE TIMES A DAY TO 1 MG FIVE TIMES A DAY
  10. LATANOPROST. [Concomitant]
     Active Substance: LATANOPROST
     Indication: GLAUCOMA
     Dosage: .005 %, 1X/DAY; ONE DROP A DAY IN BOTH EYES  CONTINUES IT ONLY IN HIS RIGHT EYE
  11. CAVERJECT [Suspect]
     Active Substance: ALPROSTADIL
     Indication: NERVE COMPRESSION
     Dosage: 20 UG, AS NEEDED
  12. CAVERJECT [Suspect]
     Active Substance: ALPROSTADIL
     Dosage: 20 UG, (EVERY TWO TO THREE TIMES A WEEK)
     Route: 017
     Dates: start: 1993
  13. LOTEMAX [Concomitant]
     Active Substance: LOTEPREDNOL ETABONATE
     Dosage: UNK (14 TIMES A DAY)
  14. PROLENSA [Concomitant]
     Active Substance: BROMFENAC SODIUM
     Dosage: UNK, 4X/DAY

REACTIONS (12)
  - Intraocular pressure increased [Recovering/Resolving]
  - Eye inflammation [Recovering/Resolving]
  - Adrenal disorder [Unknown]
  - Vitreous floaters [Unknown]
  - Visual impairment [Recovering/Resolving]
  - Anger [Unknown]
  - Cataract [Unknown]
  - Hypertension [Unknown]
  - Glaucoma [Recovered/Resolved]
  - Product container issue [Unknown]
  - Carotid artery occlusion [Unknown]
  - Dysstasia [Unknown]

NARRATIVE: CASE EVENT DATE: 2013
